FAERS Safety Report 6252287-0 (Version None)
Quarter: 2009Q3

REPORT INFORMATION
  Report Type: 
  Country: None (occurrence: None)
  Receive Date: 20090701
  Receipt Date: 20071116
  Transmission Date: 20100115
  Serious: Yes (Other)
  Sender: FDA-Public Use
  Company Number: US-ASTRAZENECA-2007UW13923

PATIENT
  Sex: Male

DRUGS (38)
  1. SEROQUEL [Suspect]
     Indication: SLEEP DISORDER
     Dosage: 25 TO 300 MG
     Route: 048
     Dates: start: 20030301
  2. SEROQUEL [Suspect]
     Dosage: STRENGTH 25 MG TO 200 MG
     Route: 048
     Dates: start: 20030220
  3. RISPERDAL [Suspect]
     Route: 048
     Dates: start: 20040501
  4. RISPERDAL [Suspect]
     Dates: start: 20040525
  5. ZYPREXA [Suspect]
     Route: 048
     Dates: start: 20010620
  6. ABILIFY [Concomitant]
     Dates: start: 20030325
  7. MINOXIDIL [Concomitant]
     Dates: start: 20010206
  8. WELLBUTRIN SR [Concomitant]
     Dates: start: 20030325
  9. TOPROL-XL [Concomitant]
     Dates: start: 20010731
  10. LISINOPRIL [Concomitant]
     Dates: start: 20010501
  11. CLONIDINE [Concomitant]
     Dates: start: 20011108
  12. FUROSEMIDE INTENSOL [Concomitant]
     Dates: start: 20020104
  13. AVANDIA [Concomitant]
     Dates: start: 20020403
  14. GEMFIBROZIL [Concomitant]
     Dates: start: 20020620
  15. ASPIRIN [Concomitant]
     Dates: start: 20020110
  16. PREVACID [Concomitant]
     Dates: start: 20020826
  17. CIALIS [Concomitant]
     Dates: start: 20050826
  18. INSULIN HUMULIN [Concomitant]
     Route: 058
     Dates: start: 20031014
  19. HYDROCHLOROTHIAZIDE [Concomitant]
     Dates: start: 20050110
  20. LIPITOR [Concomitant]
     Dates: start: 20050317
  21. GLIPIZIDE [Concomitant]
     Dates: start: 20030217
  22. AVELOX [Concomitant]
     Dates: start: 20050428
  23. GABAPENTIN [Concomitant]
     Dates: start: 20050428
  24. NORVASC [Concomitant]
     Dates: start: 20050726
  25. CYCLOBENZAPRINE [Concomitant]
     Dates: start: 20051109
  26. POTASSIUM CHLORIDE [Concomitant]
     Dates: start: 20020112
  27. ALBUTEROL [Concomitant]
     Dosage: STRENGTH- 17 GM, 0.83 MG/ML
     Dates: start: 20010507
  28. ROZEREM [Concomitant]
     Dates: start: 20060814
  29. CITALOPRAM HYDROBROMIDE [Concomitant]
     Dates: start: 20070727
  30. ZOLPIDEM TARTRATE [Concomitant]
     Dates: start: 20070727
  31. LORAZEPAM [Concomitant]
     Dates: start: 20070413
  32. SIMVASTATIN [Concomitant]
     Dates: start: 20050311
  33. IPRATROPIUM BROMIDE [Concomitant]
     Dates: start: 20010506
  34. VERAPAMIL [Concomitant]
     Dates: start: 20010501
  35. CARBAMAZEPINE [Concomitant]
     Dates: start: 19990404
  36. ZIPRASIDONE HCL [Concomitant]
     Dates: start: 20030202
  37. CLOZAPINE [Concomitant]
     Dosage: STRENGTH- 1000 / ML
     Dates: start: 20010509
  38. HEPARIN [Concomitant]
     Dates: start: 20010502

REACTIONS (2)
  - DIABETIC NEUROPATHY [None]
  - TYPE 2 DIABETES MELLITUS [None]
